FAERS Safety Report 5704692-6 (Version None)
Quarter: 2008Q2

REPORT INFORMATION
  Report Type: 
  Country: None (occurrence: None)
  Receive Date: 20080414
  Receipt Date: 20080410
  Transmission Date: 20081010
  Serious: Yes (Other)
  Sender: FDA-Public Use
  Company Number: GB-JNJFOC-20080401383

PATIENT
  Age: 5 Year
  Sex: Male

DRUGS (7)
  1. IBUPROFEN [Suspect]
     Indication: PYREXIA
  2. PARACETAMOL [Suspect]
  3. PARACETAMOL [Suspect]
     Indication: PYREXIA
     Dosage: DURATION 1 DAY
  4. CYCLOSPORINE [Concomitant]
  5. AZATHIOPRINE [Concomitant]
  6. PREDNISOLONE [Concomitant]
  7. ANTIHYPERTENSIVE [Concomitant]

REACTIONS (2)
  - DRUG INEFFECTIVE [None]
  - RENAL FAILURE [None]
